FAERS Safety Report 6197402-2 (Version None)
Quarter: 2009Q2

REPORT INFORMATION
  Report Type: 
  Country: None (occurrence: None)
  Receive Date: 20090521
  Receipt Date: 20090511
  Transmission Date: 20091009
  Serious: Yes (Hospitalization)
  Sender: FDA-Public Use
  Company Number: PHHY2009MX18536

PATIENT
  Age: 57 Year
  Sex: Female

DRUGS (2)
  1. TRILEPTAL [Suspect]
     Indication: EPILEPSY
     Dosage: 600 MG PER DAY
     Route: 048
     Dates: start: 19901101, end: 20090414
  2. TRILEPTAL [Suspect]
     Dosage: UNK
     Route: 048
     Dates: start: 20090429

REACTIONS (3)
  - DIZZINESS [None]
  - FALL [None]
  - HEAD INJURY [None]
